FAERS Safety Report 5707529-4 (Version None)
Quarter: 2008Q2

REPORT INFORMATION
  Report Type: 
  Country: None (occurrence: None)
  Receive Date: 20080416
  Receipt Date: 20080404
  Transmission Date: 20081010
  Serious: Yes (Other)
  Sender: FDA-Public Use
  Company Number: US-PFIZER INC-2008011004

PATIENT
  Sex: Male

DRUGS (5)
  1. CHANTIX [Suspect]
     Indication: SMOKING CESSATION THERAPY
  2. NORVASC [Concomitant]
  3. AMBIEN [Concomitant]
  4. OXYCODONE HCL [Concomitant]
  5. DEXTROAMPHETAMINE SULFATE [Concomitant]

REACTIONS (3)
  - CATARACT OPERATION [None]
  - DIPLOPIA [None]
  - FATIGUE [None]
